FAERS Safety Report 4837892-8 (Version None)
Quarter: 2005Q4

REPORT INFORMATION
  Report Type: 
  Country: None (occurrence: None)
  Receive Date: 20051128
  Receipt Date: 20051117
  Transmission Date: 20060501
  Serious: Yes (Hospitalization, Disabling, Other)
  Sender: FDA-Public Use
  Company Number: US-MERCK-0511USA03248

PATIENT
  Sex: Female
  Weight: 95 kg

DRUGS (6)
  1. VIOXX [Suspect]
     Indication: SHOULDER PAIN
     Route: 048
     Dates: start: 19930101
  2. VIOXX [Suspect]
     Indication: ARTHRALGIA
     Route: 048
     Dates: start: 19930101
  3. LIPITOR [Concomitant]
     Route: 065
  4. ACTOS [Concomitant]
     Route: 065
  5. GLUCOTROL [Concomitant]
     Route: 065
  6. VASOTEC [Concomitant]
     Route: 065

REACTIONS (3)
  - BACK PAIN [None]
  - CHEST PAIN [None]
  - MYOCARDIAL INFARCTION [None]
